FAERS Safety Report 9495064 (Version 2)
Quarter: 2013Q3

REPORT INFORMATION
  Report Type: Report from Study
  Country: ID (occurrence: ID)
  Receive Date: 20130903
  Receipt Date: 20130905
  Transmission Date: 20140515
  Serious: Yes (Other)
  Sender: FDA-Public Use
  Company Number: ID-SANOFI-AVENTIS-2013SA085802

PATIENT
  Age: 30 Year
  Sex: Male

DRUGS (2)
  1. PRIMAQUINE [Suspect]
     Indication: MALARIA
     Route: 065
     Dates: end: 20130512
  2. DIHYDROARTEMISININ/PEPERAQUINE [Suspect]
     Indication: MALARIA
     Route: 065
     Dates: end: 20130512

REACTIONS (1)
  - Electrocardiogram QT prolonged [Recovered/Resolved]
